FAERS Safety Report 12860267 (Version 2)
Quarter: 2016Q4

REPORT INFORMATION
  Report Type: Spontaneous
  Country: US (occurrence: US)
  Receive Date: 20161019
  Receipt Date: 20161031
  Transmission Date: 20170207
  Serious: Yes (Hospitalization, Other)
  Sender: FDA-Public Use
  Company Number: US-BELCHER PHARMACEUTICALS, LLC-2016VTS00199

PATIENT
  Age: 57 Year
  Sex: Female
  Weight: 63.49 kg

DRUGS (9)
  1. SINGULAIR [Concomitant]
     Active Substance: MONTELUKAST SODIUM
     Dosage: 10 MG, 1X/DAY
  2. HYOSCYAMINE SULFATE SL [Suspect]
     Active Substance: HYOSCYAMINE SULFATE
     Indication: HAEMORRHOIDAL HAEMORRHAGE
  3. HYOSCYAMINE ER [Suspect]
     Active Substance: HYOSCYAMINE SULFATE
     Indication: HAEMORRHOIDAL HAEMORRHAGE
  4. XYZAL [Concomitant]
     Active Substance: LEVOCETIRIZINE DIHYDROCHLORIDE
     Dosage: 5 MG, 1X/DAY
  5. HYOSCYAMINE ER [Suspect]
     Active Substance: HYOSCYAMINE SULFATE
     Indication: ABDOMINAL PAIN
     Dosage: 1 TABLETS, 2X/DAY
     Route: 048
     Dates: start: 2015, end: 201609
  6. HYOSCYAMINE SULFATE SL [Suspect]
     Active Substance: HYOSCYAMINE SULFATE
     Indication: CONSTIPATION
  7. HYOSCYAMINE ER [Suspect]
     Active Substance: HYOSCYAMINE SULFATE
     Indication: CONSTIPATION
  8. ALBUTEROL. [Concomitant]
     Active Substance: ALBUTEROL
  9. HYOSCYAMINE SULFATE SL [Suspect]
     Active Substance: HYOSCYAMINE SULFATE
     Indication: ABDOMINAL PAIN
     Dosage: 0.125 MG, 2X/DAY
     Route: 060
     Dates: start: 2015, end: 201609

REACTIONS (15)
  - Fall [Not Recovered/Not Resolved]
  - Heart rate irregular [Unknown]
  - Asthma [Not Recovered/Not Resolved]
  - Urinary retention [Not Recovered/Not Resolved]
  - Insomnia [Not Recovered/Not Resolved]
  - Dizziness [Not Recovered/Not Resolved]
  - Ankle fracture [Not Recovered/Not Resolved]
  - Asthenia [Unknown]
  - Hallucination [Recovering/Resolving]
  - Ligament injury [Not Recovered/Not Resolved]
  - Aphasia [Recovering/Resolving]
  - Dry mouth [Not Recovered/Not Resolved]
  - Pain [Not Recovered/Not Resolved]
  - Feeling abnormal [Recovered/Resolved]
  - Joint swelling [Not Recovered/Not Resolved]

NARRATIVE: CASE EVENT DATE: 2016
